FAERS Safety Report 8837622 (Version 3)
Quarter: 2015Q3

REPORT INFORMATION
  Report Type: Report from Study
  Country: US (occurrence: US)
  Receive Date: 20121012
  Receipt Date: 20150820
  Transmission Date: 20151125
  Serious: Yes (Other)
  Sender: FDA-Public Use
  Company Number: US-ROCHE-1139562

PATIENT
  Sex: Male
  Weight: 13 kg

DRUGS (6)
  1. PROTROPIN [Suspect]
     Active Substance: SOMATREM
     Indication: CHARGE SYNDROME
     Route: 058
     Dates: start: 20000216
  2. CARNITINE [Concomitant]
     Active Substance: CARNITINE
  3. PROTROPIN [Suspect]
     Active Substance: SOMATREM
     Indication: GROWTH HORMONE DEFICIENCY
     Route: 058
  4. PROTROPIN [Suspect]
     Active Substance: SOMATREM
     Indication: BLOOD THYROID STIMULATING HORMONE DECREASED
     Route: 058
  5. PROTROPIN [Suspect]
     Active Substance: SOMATREM
     Indication: HYPOPITUITARISM
  6. LEVOXYL [Concomitant]
     Active Substance: LEVOTHYROXINE SODIUM
     Route: 048

REACTIONS (1)
  - Pneumonia [Recovered/Resolved]
